FAERS Safety Report 17818604 (Version 1)
Quarter: 2020Q2

REPORT INFORMATION
  Report Type: Spontaneous
  Country: AU (occurrence: AU)
  Receive Date: 20200522
  Receipt Date: 20200522
  Transmission Date: 20200714
  Serious: Yes (Other)
  Sender: FDA-Public Use
  Company Number: AU-ELI_LILLY_AND_COMPANY-AU202005007256

PATIENT
  Age: 35 Year
  Sex: Female

DRUGS (2)
  1. ZYPREXA [Suspect]
     Active Substance: OLANZAPINE
     Indication: PRODUCT USED FOR UNKNOWN INDICATION
     Dosage: UNK, UNKNOWN
     Route: 065
  2. ABILIFY [Concomitant]
     Active Substance: ARIPIPRAZOLE
     Indication: PRODUCT USED FOR UNKNOWN INDICATION

REACTIONS (10)
  - Diarrhoea [Unknown]
  - Flatulence [Unknown]
  - Hypoaesthesia [Unknown]
  - Dry eye [Unknown]
  - Restlessness [Unknown]
  - Agitation [Unknown]
  - Dry skin [Unknown]
  - Feeling abnormal [Unknown]
  - Disturbance in attention [Unknown]
  - Vomiting [Unknown]

NARRATIVE: CASE EVENT DATE: 20200110
